FAERS Safety Report 19315602 (Version 1)
Quarter: 2021Q2

REPORT INFORMATION
  Report Type: Report from Study
  Country: US (occurrence: US)
  Receive Date: 20210527
  Receipt Date: 20210527
  Transmission Date: 20210717
  Serious: Yes (Death, Other)
  Sender: FDA-Public Use
  Company Number: US-PURDUE PHARMA-USA-2021-0260938

PATIENT
  Age: 37 Year
  Sex: Female

DRUGS (2)
  1. OXYCODONE HYDROCHLORIDE. [Suspect]
     Active Substance: OXYCODONE HYDROCHLORIDE
     Indication: PRODUCT USED FOR UNKNOWN INDICATION
     Dosage: 10 MG, UNK
     Route: 048
  2. ALCOHOL. [Suspect]
     Active Substance: ALCOHOL
     Indication: PRODUCT USED FOR UNKNOWN INDICATION
     Route: 065

REACTIONS (17)
  - Ammonia increased [Unknown]
  - Pyrexia [Unknown]
  - Cardio-respiratory arrest [Unknown]
  - Respiratory failure [Unknown]
  - Mydriasis [Unknown]
  - Hypotonia [Unknown]
  - Overdose [Fatal]
  - Heart rate increased [Unknown]
  - Unresponsive to stimuli [Unknown]
  - Areflexia [Unknown]
  - Substance abuse [Unknown]
  - Pneumonia aspiration [Unknown]
  - Diabetic ketoacidosis [Unknown]
  - Brain death [Unknown]
  - Loss of consciousness [Unknown]
  - Infection [Unknown]
  - Pupil fixed [Unknown]

NARRATIVE: CASE EVENT DATE: 202003
